FAERS Safety Report 16807816 (Version 2)
Quarter: 2019Q3

REPORT INFORMATION
  Report Type: Report from Study
  Country: ZA (occurrence: ZA)
  Receive Date: 20190915
  Receipt Date: 20190915
  Transmission Date: 20191005
  Serious: Yes (Other)
  Sender: FDA-Public Use
  Company Number: PHHY2019ZA187376

PATIENT
  Age: 33 Year
  Sex: Female
  Weight: 51 kg

DRUGS (19)
  1. LAMPRENE [Suspect]
     Active Substance: CLOFAZIMINE
     Indication: TUBERCULOSIS
     Dosage: 100 MG, QD
     Route: 048
     Dates: start: 20190211, end: 20190502
  2. LAMPRENE [Suspect]
     Active Substance: CLOFAZIMINE
     Dosage: 100 MG, QD
     Route: 048
     Dates: start: 201905
  3. PYRAZINAMIDE. [Suspect]
     Active Substance: PYRAZINAMIDE
     Indication: TUBERCULOSIS
     Dosage: 1.75 G, QD
     Route: 065
     Dates: start: 20190211, end: 20190329
  4. BEDAQUILINE [Suspect]
     Active Substance: BEDAQUILINE
     Dosage: 200 MG, TIW
     Route: 065
     Dates: start: 201902, end: 20190502
  5. LINEZOLID. [Suspect]
     Active Substance: LINEZOLID
     Dosage: UNK
     Route: 065
     Dates: start: 201905
  6. BEDAQUILINE [Suspect]
     Active Substance: BEDAQUILINE
     Indication: TUBERCULOSIS
     Dosage: 400 MG, QD
     Route: 065
     Dates: start: 20190211, end: 201902
  7. BEDAQUILINE [Suspect]
     Active Substance: BEDAQUILINE
     Dosage: 200 MG, TIW
     Route: 065
     Dates: start: 201905
  8. LEVOFLOXACIN. [Concomitant]
     Active Substance: LEVOFLOXACIN
     Indication: TUBERCULOSIS
     Dosage: UNK
     Route: 065
     Dates: start: 20190211
  9. LINEZOLID. [Suspect]
     Active Substance: LINEZOLID
     Indication: TUBERCULOSIS
     Dosage: 600 MG, UNK
     Route: 048
     Dates: start: 20190211, end: 20190502
  10. DELAMANID [Suspect]
     Active Substance: DELAMANID
     Dosage: 100 MG, BID
     Route: 065
     Dates: start: 201905
  11. TERIZIDONE [Suspect]
     Active Substance: TERIZIDONE
     Dosage: UNK
     Route: 065
     Dates: start: 201905
  12. NEVIRAPINE. [Suspect]
     Active Substance: NEVIRAPINE
     Indication: ANTIRETROVIRAL THERAPY
     Dosage: 200 MG, BID
     Route: 048
     Dates: start: 20190204, end: 20190430
  13. TERIZIDONE [Suspect]
     Active Substance: TERIZIDONE
     Indication: TUBERCULOSIS
     Dosage: 500 MG, QD
     Route: 048
     Dates: start: 20190313, end: 20190502
  14. ISONIAZID. [Suspect]
     Active Substance: ISONIAZID
     Indication: TUBERCULOSIS
     Dosage: 600 MG, QD
     Route: 048
     Dates: start: 20190211, end: 20190430
  15. DELAMANID [Suspect]
     Active Substance: DELAMANID
     Indication: TUBERCULOSIS
     Dosage: 100 MG, BID
     Route: 065
     Dates: start: 20190313, end: 20190502
  16. EMTRICITABINE / TENOFOVIR DISOPROXIL FUMARATE [Suspect]
     Active Substance: EMTRICITABINE\TENOFOVIR DISOPROXIL FUMARATE
     Indication: ANTIRETROVIRAL THERAPY
     Dosage: UNK
     Route: 065
     Dates: start: 20190304, end: 20190430
  17. ISONIAZID. [Suspect]
     Active Substance: ISONIAZID
     Dosage: 600 MG, QD
     Route: 048
     Dates: start: 20190513
  18. EMTRICITABINE / TENOFOVIR DISOPROXIL FUMARATE [Suspect]
     Active Substance: EMTRICITABINE\TENOFOVIR DISOPROXIL FUMARATE
     Dosage: UNK
     Route: 065
     Dates: start: 20190516
  19. ETHAMBUTOL [Concomitant]
     Active Substance: ETHAMBUTOL HYDROCHLORIDE
     Indication: TUBERCULOSIS
     Dosage: UNK
     Route: 065
     Dates: start: 20190211

REACTIONS (16)
  - Weight decreased [Unknown]
  - Arthralgia [Unknown]
  - Red cell distribution width increased [Unknown]
  - Thyroxine decreased [Unknown]
  - Alanine aminotransferase increased [Unknown]
  - Blood alkaline phosphatase increased [Unknown]
  - Drug-induced liver injury [Recovering/Resolving]
  - Aspartate aminotransferase increased [Unknown]
  - Haematocrit decreased [Unknown]
  - Red blood cell count decreased [Unknown]
  - Blood sodium decreased [Unknown]
  - Blood potassium decreased [Unknown]
  - Blood thyroid stimulating hormone increased [Unknown]
  - Gamma-glutamyltransferase increased [Unknown]
  - Haemoglobin decreased [Unknown]
  - White blood cell count decreased [Unknown]

NARRATIVE: CASE EVENT DATE: 20190211
